FAERS Safety Report 5406073-1 (Version None)
Quarter: 2007Q3

REPORT INFORMATION
  Report Type: 
  Country: None (occurrence: None)
  Receive Date: 20070806
  Receipt Date: 20070802
  Transmission Date: 20080115
  Serious: Yes (Other)
  Sender: FDA-Public Use
  Company Number: D0054039A

PATIENT
  Age: 45 Year
  Sex: Female
  Weight: 77 kg

DRUGS (2)
  1. ARIXTRA [Suspect]
     Dosage: .75MG PER DAY
     Route: 058
     Dates: start: 20070706, end: 20070718
  2. MARCUMAR [Concomitant]
     Route: 048

REACTIONS (3)
  - ABDOMINAL PAIN LOWER [None]
  - INJECTION SITE HAEMATOMA [None]
  - INJECTION SITE PAIN [None]
